FAERS Safety Report 13561969 (Version 1)
Quarter: 2017Q2

REPORT INFORMATION
  Report Type: Spontaneous
  Country: CA (occurrence: CA)
  Receive Date: 20170518
  Receipt Date: 20170518
  Transmission Date: 20170830
  Serious: Yes (Hospitalization)
  Sender: FDA-Public Use
  Company Number: CA-BEH-2017080491

PATIENT
  Age: 72 Year
  Sex: Male

DRUGS (1)
  1. PRIVIGEN [Suspect]
     Active Substance: HUMAN IMMUNOGLOBULIN G
     Indication: DEMYELINATING POLYNEUROPATHY
     Dosage: 1 VIAL (20G)
     Route: 065
     Dates: start: 20170510, end: 20170510

REACTIONS (3)
  - Blood pressure decreased [Unknown]
  - Chills [Unknown]
  - Tachypnoea [Unknown]

NARRATIVE: CASE EVENT DATE: 20170510
